FAERS Safety Report 10312084 (Version 2)
Quarter: 2015Q1

REPORT INFORMATION
  Report Type: Spontaneous
  Country: US (occurrence: US)
  Receive Date: 20140717
  Receipt Date: 20150126
  Transmission Date: 20150720
  Serious: No
  Sender: FDA-Public Use
  Company Number: US-GILEAD-2014-0108913

PATIENT
  Age: 43 Year
  Sex: Female

DRUGS (5)
  1. NAC [Concomitant]
  2. ADCIRCA [Concomitant]
     Active Substance: TADALAFIL
  3. METOPROLOL [Concomitant]
     Active Substance: METOPROLOL
  4. LETAIRIS [Suspect]
     Active Substance: AMBRISENTAN
     Indication: CONNECTIVE TISSUE DISORDER
  5. LETAIRIS [Suspect]
     Active Substance: AMBRISENTAN
     Indication: PULMONARY HYPERTENSION
     Dosage: 10 MG, QD
     Route: 065
     Dates: end: 20140702

REACTIONS (1)
  - Oedema peripheral [Unknown]
